FAERS Safety Report 16561143 (Version 1)
Quarter: 2019Q3

REPORT INFORMATION
  Report Type: Spontaneous
  Country: ES (occurrence: ES)
  Receive Date: 20190711
  Receipt Date: 20190711
  Transmission Date: 20191004
  Serious: Yes (Other)
  Sender: FDA-Public Use
  Company Number: ES-MYLANLABS-2019M1063442

PATIENT
  Age: 58 Year
  Sex: Male

DRUGS (1)
  1. METHOTREXATE. [Suspect]
     Active Substance: METHOTREXATE
     Indication: PSORIASIS
     Dosage: INTERMITTENT TREATMENT
     Route: 065

REACTIONS (3)
  - Contraindicated product administered [Recovered/Resolved]
  - Chronic myeloid leukaemia [Recovered/Resolved]
  - Bone marrow failure [Recovered/Resolved]
